FAERS Safety Report 5933683-5 (Version None)
Quarter: 2008Q4

REPORT INFORMATION
  Report Type: 
  Country: None (occurrence: None)
  Receive Date: 20081023
  Receipt Date: 20081013
  Transmission Date: 20090506
  Serious: Yes (Other)
  Sender: FDA-Public Use
  Company Number: 08H-013-0315053-00

PATIENT
  Age: 47 Year
  Sex: Female

DRUGS (8)
  1. PENTOTHAL [Suspect]
     Indication: SEDATIVE THERAPY
  2. PROPOFOL [Suspect]
     Indication: SEDATIVE THERAPY
  3. PHENYTOIN [Concomitant]
  4. VALPROATE SODIUM [Concomitant]
  5. ACYCLOVIR [Concomitant]
  6. LEVETIRACETAM [Concomitant]
  7. GABAPENTIN [Concomitant]
  8. PREGABALIN (PREGABALIN) [Concomitant]

REACTIONS (4)
  - CONDITION AGGRAVATED [None]
  - CREUTZFELDT-JAKOB DISEASE [None]
  - ELECTROENCEPHALOGRAM ABNORMAL [None]
  - FALSE NEGATIVE LABORATORY RESULT [None]
